FAERS Safety Report 5157831-2 (Version None)
Quarter: 2006Q4

REPORT INFORMATION
  Report Type: 
  Country: None (occurrence: None)
  Receive Date: 20061116
  Receipt Date: 20061108
  Transmission Date: 20070319
  Serious: Yes (Other)
  Sender: FDA-Public Use
  Company Number: GXKR2006DE07167

PATIENT
  Age: 46 Year
  Sex: Female

DRUGS (1)
  1. PAROXAT (NGX) (PAROXETINE)FILM-COATED TABLET [Suspect]
     Indication: DEPRESSION
     Dosage: 20 MG, QD, ORAL
     Route: 048
     Dates: start: 20060101

REACTIONS (1)
  - BREAST CYST [None]
